FAERS Safety Report 15599637 (Version 2)
Quarter: 2018Q4

REPORT INFORMATION
  Report Type: Spontaneous
  Country: CA (occurrence: CA)
  Receive Date: 20181108
  Receipt Date: 20181121
  Transmission Date: 20190205
  Serious: Yes (Other)
  Sender: FDA-Public Use
  Company Number: CA-NOVOPROD-630930

PATIENT
  Age: 32 Year
  Sex: Female
  Weight: 104 kg

DRUGS (2)
  1. SAXENDA [Suspect]
     Active Substance: LIRAGLUTIDE
     Indication: OBESITY
     Dosage: 1.8 MG, QD
     Route: 058
     Dates: start: 20180827, end: 20181030
  2. MERCAPTOPURINE. [Concomitant]
     Active Substance: MERCAPTOPURINE
     Indication: AUTOIMMUNE HEPATITIS
     Dosage: UNK
     Dates: start: 20170307

REACTIONS (1)
  - Biliary colic [Recovered/Resolved]

NARRATIVE: CASE EVENT DATE: 20181028
